FAERS Safety Report 21605508 (Version 6)
Quarter: 2025Q2

REPORT INFORMATION
  Report Type: Spontaneous
  Country: JP (occurrence: JP)
  Receive Date: 20221116
  Receipt Date: 20250402
  Transmission Date: 20250717
  Serious: Yes (Death, Hospitalization, Other)
  Sender: JAZZ
  Company Number: JP-JAZZ-2022-JP-035454

PATIENT
  Age: 30 Year
  Sex: Female
  Weight: 45.3 kg

DRUGS (4)
  1. DEFITELIO [Suspect]
     Active Substance: DEFIBROTIDE SODIUM
     Indication: Venoocclusive liver disease
     Route: 042
     Dates: start: 20221104, end: 20221108
  2. DEFITELIO [Suspect]
     Active Substance: DEFIBROTIDE SODIUM
     Route: 042
     Dates: start: 20221121, end: 20221129
  3. DEFITELIO [Suspect]
     Active Substance: DEFIBROTIDE SODIUM
     Route: 042
     Dates: start: 20221104, end: 20221109
  4. DEFITELIO [Suspect]
     Active Substance: DEFIBROTIDE SODIUM
     Route: 042
     Dates: start: 20221120, end: 20221125

REACTIONS (4)
  - Pancreatitis [Recovered/Resolved]
  - Pulmonary alveolar haemorrhage [Not Recovered/Not Resolved]
  - Haematuria [Recovering/Resolving]
  - Multiple organ dysfunction syndrome [Fatal]

NARRATIVE: CASE EVENT DATE: 20221101
